FAERS Safety Report 16728572 (Version 2)
Quarter: 2019Q3

REPORT INFORMATION
  Report Type: Report from Study
  Country: None (occurrence: US)
  Receive Date: 20190822
  Receipt Date: 20190830
  Transmission Date: 20191005
  Serious: No
  Sender: FDA-Public Use
  Company Number: US-ABBVIE-19K-163-2892186-00

PATIENT
  Sex: Female

DRUGS (2)
  1. HUMIRA [Suspect]
     Active Substance: ADALIMUMAB
     Indication: SPINAL OSTEOARTHRITIS
     Route: 058
     Dates: end: 20190803
  2. HUMIRA [Suspect]
     Active Substance: ADALIMUMAB
     Route: 058
     Dates: start: 20190803

REACTIONS (4)
  - Gait disturbance [Not Recovered/Not Resolved]
  - Peripheral swelling [Unknown]
  - Musculoskeletal disorder [Not Recovered/Not Resolved]
  - Memory impairment [Not Recovered/Not Resolved]
